FAERS Safety Report 7051960-4 (Version None)
Quarter: 2010Q4

REPORT INFORMATION
  Report Type: 
  Country: None (occurrence: None)
  Receive Date: 20101019
  Receipt Date: 20101011
  Transmission Date: 20110411
  Serious: Yes (Hospitalization)
  Sender: FDA-Public Use
  Company Number: TR-B.I. PHARMACEUTICALS,INC./RIDGEFIELD-2010-DE-05647GD

PATIENT

DRUGS (2)
  1. DIPYRIDAMOLE [Suspect]
     Indication: ANTIPLATELET THERAPY
  2. ASPIRIN [Suspect]
     Indication: ANTIPLATELET THERAPY

REACTIONS (1)
  - CEREBRAL HAEMORRHAGE [None]
